FAERS Safety Report 17101849 (Version 1)
Quarter: 2019Q4

REPORT INFORMATION
  Report Type: Spontaneous
  Country: DE (occurrence: DE)
  Receive Date: 20191202
  Receipt Date: 20191202
  Transmission Date: 20200122
  Serious: Yes (Hospitalization, Other)
  Sender: FDA-Public Use
  Company Number: DE-ELI_LILLY_AND_COMPANY-DE201911010470

PATIENT
  Age: 70 Year
  Sex: Male
  Weight: 110 kg

DRUGS (1)
  1. TRULICITY [Suspect]
     Active Substance: DULAGLUTIDE
     Indication: DIABETES MELLITUS
     Dosage: 1.5 MG, WEEKLY (1/W)
     Route: 058
     Dates: start: 20190401, end: 20191104

REACTIONS (5)
  - Pallor [Recovered/Resolved]
  - Vomiting [Recovered/Resolved]
  - Circulatory collapse [Recovered/Resolved]
  - Nausea [Recovered/Resolved]
  - Hyperhidrosis [Recovered/Resolved]

NARRATIVE: CASE EVENT DATE: 2019
